FAERS Safety Report 19855802 (Version 1)
Quarter: 2021Q3

REPORT INFORMATION
  Report Type: Other
  Country: CA (occurrence: CA)
  Receive Date: 20210920
  Receipt Date: 20210920
  Transmission Date: 20211014
  Serious: Yes (Death, Hospitalization, Other)
  Sender: FDA-Public Use
  Company Number: CA-APOTEX-2021AP042584

PATIENT
  Age: 73 Year
  Sex: Female

DRUGS (3)
  1. AMLODIPINE [Suspect]
     Active Substance: AMLODIPINE BESYLATE
     Indication: PRODUCT USED FOR UNKNOWN INDICATION
     Dosage: UNK
     Route: 048
  2. SANDOSTATIN [Suspect]
     Active Substance: OCTREOTIDE ACETATE
     Indication: CARCINOID TUMOUR
     Dosage: 30 MILLIGRAM, 1 EVERY 4 WEEK
     Route: 030
  3. COVERSYL [PERINDOPRIL ARGININE] [Concomitant]
     Active Substance: PERINDOPRIL ARGININE
     Indication: PRODUCT USED FOR UNKNOWN INDICATION
     Dosage: UNK
     Route: 048

REACTIONS (16)
  - Pleural effusion [Unknown]
  - Blood pressure decreased [Unknown]
  - Breath sounds abnormal [Unknown]
  - Blood pressure systolic increased [Unknown]
  - Oedema peripheral [Unknown]
  - Heart rate increased [Unknown]
  - Secretion discharge [Unknown]
  - Weight decreased [Unknown]
  - Blood pressure diastolic decreased [Unknown]
  - Cough [Unknown]
  - Death [Fatal]
  - Chronic obstructive pulmonary disease [Unknown]
  - Polyp [Unknown]
  - Dyspnoea [Unknown]
  - Dizziness [Unknown]
  - Fatigue [Unknown]
